FAERS Safety Report 19422440 (Version 1)
Quarter: 2021Q2

REPORT INFORMATION
  Report Type: Spontaneous
  Country: US (occurrence: US)
  Receive Date: 20210616
  Receipt Date: 20210616
  Transmission Date: 20210717
  Serious: Yes (Other)
  Sender: FDA-Public Use
  Company Number: None

PATIENT
  Age: 68 Year
  Sex: Female
  Weight: 63.45 kg

DRUGS (13)
  1. CRESTOR [Concomitant]
     Active Substance: ROSUVASTATIN CALCIUM
  2. NAPROXEN. [Concomitant]
     Active Substance: NAPROXEN
  3. FAMOTIDINE. [Concomitant]
     Active Substance: FAMOTIDINE
  4. CYCLOBENZAPRINE. [Concomitant]
     Active Substance: CYCLOBENZAPRINE
  5. IBRANCE [Suspect]
     Active Substance: PALBOCICLIB
     Indication: NEOPLASM MALIGNANT
     Route: 048
     Dates: start: 20201121, end: 20210615
  6. OMEPRAZOLE. [Concomitant]
     Active Substance: OMEPRAZOLE
  7. ANASTROZOLE. [Concomitant]
     Active Substance: ANASTROZOLE
  8. OLMESARTAN [Concomitant]
     Active Substance: OLMESARTAN
  9. CLARITIN [Concomitant]
     Active Substance: LORATADINE
  10. VITAMIN D [Concomitant]
     Active Substance: VITAMIN D NOS
  11. FASLODEX [Concomitant]
     Active Substance: FULVESTRANT
  12. LASIX [Concomitant]
     Active Substance: FUROSEMIDE
  13. OXYBUTYNIN. [Concomitant]
     Active Substance: OXYBUTYNIN CHLORIDE

REACTIONS (1)
  - Hospice care [None]

NARRATIVE: CASE EVENT DATE: 20210615
